FAERS Safety Report 23752273 (Version 2)
Quarter: 2024Q2

REPORT INFORMATION
  Report Type: Spontaneous
  Country: SK (occurrence: SK)
  Receive Date: 20240417
  Receipt Date: 20240510
  Transmission Date: 20240716
  Serious: Yes (Death, Hospitalization)
  Sender: FDA-Public Use
  Company Number: SK-UCBSA-2024019023

PATIENT
  Sex: Male
  Weight: 90 kg

DRUGS (1)
  1. BIMZELX [Suspect]
     Active Substance: BIMEKIZUMAB-BKZX
     Indication: Psoriasis
     Dosage: 640 MILLIGRAM, WEEKLY (QW) (320 MG IN 2 S.C. PENS)
     Route: 058
     Dates: start: 20240110

REACTIONS (3)
  - Hepatorenal failure [Fatal]
  - COVID-19 [Recovered/Resolved]
  - Off label use [Unknown]

NARRATIVE: CASE EVENT DATE: 20240101
